FAERS Safety Report 18534487 (Version 2)
Quarter: 2021Q1

REPORT INFORMATION
  Report Type: Spontaneous
  Country: US (occurrence: US)
  Receive Date: 20201123
  Receipt Date: 20210319
  Transmission Date: 20210419
  Serious: No
  Sender: FDA-Public Use
  Company Number: US-INCYTE CORPORATION-2020IN011176

PATIENT

DRUGS (2)
  1. JAKAFI [Suspect]
     Active Substance: RUXOLITINIB
     Dosage: 20 MILLIGRAM, BID
     Route: 048
     Dates: start: 20160730
  2. JAKAFI [Suspect]
     Active Substance: RUXOLITINIB
     Indication: ESSENTIAL THROMBOCYTHAEMIA
     Dosage: 20 MILLIGRAM, BID
     Route: 048
     Dates: start: 20161109

REACTIONS (2)
  - Skin disorder [Unknown]
  - Off label use [Unknown]

NARRATIVE: CASE EVENT DATE: 20160730
